FAERS Safety Report 9683463 (Version 1)
Quarter: 2013Q4

REPORT INFORMATION
  Report Type: Spontaneous
  Country: KR (occurrence: KR)
  Receive Date: 20131112
  Receipt Date: 20131112
  Transmission Date: 20140711
  Serious: Yes (Hospitalization, Other)
  Sender: FDA-Public Use
  Company Number: KR-TEVA-443821ISR

PATIENT
  Age: 32 Year
  Sex: Male
  Weight: 66 kg

DRUGS (5)
  1. FENTANYL [Suspect]
     Indication: GENERAL ANAESTHESIA
     Dosage: 100 MICROGRAM
  2. MESALAZIN [Concomitant]
     Indication: COLITIS ULCERATIVE
     Route: 048
  3. METFORMIN [Concomitant]
     Indication: DIABETES MELLITUS
  4. THIOPENTAL SODIUM 350 MG [Concomitant]
     Indication: ANAESTHESIA
     Route: 042
  5. VECURONIUM 10 MG [Concomitant]
     Indication: NEUROMUSCULAR BLOCKADE
     Dosage: 10 MG

REACTIONS (3)
  - Pneumonia aspiration [Recovered/Resolved]
  - Cough [Recovered/Resolved]
  - Vomiting [Recovered/Resolved]
